FAERS Safety Report 15159243 (Version 4)
Quarter: 2020Q1

REPORT INFORMATION
  Report Type: Report from Study
  Country: CA (occurrence: CA)
  Receive Date: 20180718
  Receipt Date: 20200321
  Transmission Date: 20200409
  Serious: Yes (Hospitalization, Other)
  Sender: FDA-Public Use
  Company Number: CA-BRISTOL-MYERS SQUIBB COMPANY-BMS-2018-066526

PATIENT
  Age: 59 Year
  Sex: Female

DRUGS (3)
  1. YERVOY [Suspect]
     Active Substance: IPILIMUMAB
     Indication: RENAL CELL CARCINOMA
     Dosage: 1 MG/KG, Q3WK
     Route: 042
     Dates: start: 20180711, end: 20180801
  2. HYDROMORPHONE [Concomitant]
     Active Substance: HYDROMORPHONE
     Indication: PRODUCT USED FOR UNKNOWN INDICATION
     Dosage: UNK
     Route: 065
  3. NIVOLUMAB [Suspect]
     Active Substance: NIVOLUMAB
     Indication: RENAL CELL CARCINOMA
     Dosage: 3 MG/KG, Q3WK
     Route: 042
     Dates: start: 20180711, end: 20180801

REACTIONS (11)
  - Incorrect dose administered [Unknown]
  - Drug ineffective [Unknown]
  - Intentional product use issue [Unknown]
  - Decreased appetite [Unknown]
  - Abdominal tenderness [Unknown]
  - Fatigue [Unknown]
  - Adverse event [Unknown]
  - Depression [Unknown]
  - Nausea [Unknown]
  - Lip pain [Unknown]
  - Lip erythema [Unknown]

NARRATIVE: CASE EVENT DATE: 20180711
